FAERS Safety Report 5244096-6 (Version None)
Quarter: 2007Q1

REPORT INFORMATION
  Report Type: 
  Country: None (occurrence: None)
  Receive Date: 20070216
  Receipt Date: 20070202
  Transmission Date: 20070707
  Serious: Yes (Hospitalization)
  Sender: FDA-Public Use
  Company Number: E2020-00889-SPO-JP

PATIENT
  Age: 88 Year
  Sex: Male

DRUGS (3)
  1. ARICEPT [Suspect]
     Indication: DEMENTIA ALZHEIMER'S TYPE
     Dosage: 5 MG, 1 IN 1 D; ORAL
     Route: 048
     Dates: start: 20061108, end: 20070110
  2. ZOLPIDEM TARTRATE [Concomitant]
  3. TAMSULOSIN HCL [Concomitant]

REACTIONS (2)
  - BRADYCARDIA [None]
  - PLEURAL EFFUSION [None]
